FAERS Safety Report 17259593 (Version 1)
Quarter: 2020Q1

REPORT INFORMATION
  Report Type: Spontaneous
  Country: JP (occurrence: JP)
  Receive Date: 20200110
  Receipt Date: 20200110
  Transmission Date: 20200409
  Serious: Yes (Hospitalization, Other)
  Sender: FDA-Public Use
  Company Number: JP-GILEAD-2020-0445848

PATIENT
  Age: 40 Year
  Sex: Male

DRUGS (4)
  1. TRUVADA [Suspect]
     Active Substance: EMTRICITABINE\TENOFOVIR DISOPROXIL FUMARATE
     Indication: HIV INFECTION
     Dosage: UNK
     Route: 048
  2. NORVIR [Concomitant]
     Active Substance: RITONAVIR
     Indication: HIV INFECTION
  3. PREZISTANAIVE [Concomitant]
     Active Substance: DARUNAVIR
     Indication: HIV INFECTION
  4. TRUVADA [Suspect]
     Active Substance: EMTRICITABINE\TENOFOVIR DISOPROXIL FUMARATE
     Dosage: UNK
     Route: 048

REACTIONS (1)
  - Aortic dissection [Recovering/Resolving]
